FAERS Safety Report 10262842 (Version 5)
Quarter: 2015Q1

REPORT INFORMATION
  Report Type: Spontaneous
  Country: US (occurrence: US)
  Receive Date: 20140626
  Receipt Date: 20150319
  Transmission Date: 20150720
  Serious: Yes (Congenital Anomaly, Other)
  Sender: FDA-Public Use
  Company Number: US-ELI_LILLY_AND_COMPANY-US201406007701

PATIENT

DRUGS (6)
  1. PROMETHAZINE HYDROCHLORIDE. [Concomitant]
     Active Substance: PROMETHAZINE HYDROCHLORIDE
     Route: 064
  2. BUTORPHANOL TARTRATE. [Concomitant]
     Active Substance: BUTORPHANOL TARTRATE
     Route: 064
  3. PROZAC [Suspect]
     Active Substance: FLUOXETINE HYDROCHLORIDE
     Indication: PRODUCT USED FOR UNKNOWN INDICATION
     Dosage: 20 MG, QD
     Route: 064
  4. GENTAMICIN. [Concomitant]
     Active Substance: GENTAMICIN
     Route: 064
  5. EPHEDRINE [Concomitant]
     Active Substance: EPHEDRINE
     Route: 064
  6. BENZYLPENICILLIN                   /00000903/ [Concomitant]
     Route: 064

REACTIONS (6)
  - Respiratory distress [Unknown]
  - Tendon disorder [Recovering/Resolving]
  - Large for dates baby [Unknown]
  - Shoulder dystocia [Unknown]
  - Foetal exposure during pregnancy [Recovered/Resolved]
  - Talipes [Recovering/Resolving]
